FAERS Safety Report 14920508 (Version 4)
Quarter: 2018Q3

REPORT INFORMATION
  Report Type: Report from Study
  Country: FR (occurrence: FR)
  Receive Date: 20180521
  Receipt Date: 20180829
  Transmission Date: 20181010
  Serious: Yes (Death, Hospitalization, Other)
  Sender: FDA-Public Use
  Company Number: FR-JAZZ-2018-FR-007711

PATIENT

DRUGS (1)
  1. DEFITELIO [Suspect]
     Active Substance: DEFIBROTIDE SODIUM
     Indication: VENOOCCLUSIVE DISEASE
     Dosage: 21.05 MG/KG, QD
     Route: 042
     Dates: start: 20150819, end: 20150830

REACTIONS (4)
  - Incorrect drug administration duration [Unknown]
  - Septic shock [Recovered/Resolved]
  - Nephropathy toxic [Fatal]
  - Aplasia [Fatal]

NARRATIVE: CASE EVENT DATE: 20150831
